FAERS Safety Report 8337964-X (Version None)
Quarter: 2012Q2

REPORT INFORMATION
  Report Type: 
  Country: None (occurrence: None)
  Receive Date: 20120504
  Receipt Date: 20120501
  Transmission Date: 20120825
  Serious: Yes (Other)
  Sender: FDA-Public Use
  Company Number: SG-ROXANE LABORATORIES, INC.-2012-RO-01158RO

PATIENT
  Age: 80 Year
  Sex: Female

DRUGS (4)
  1. AMLODIPINE [Suspect]
     Indication: HYPERTENSION
  2. METHYLDOPA [Suspect]
     Indication: HYPERTENSION
  3. CARVEDILOL [Suspect]
     Indication: HYPERTENSION
  4. HYDRALAZINE HCL [Suspect]
     Indication: HYPERTENSION

REACTIONS (2)
  - DIARRHOEA [None]
  - PNEUMONIA [None]
